FAERS Safety Report 4808175-7 (Version None)
Quarter: 2005Q4

REPORT INFORMATION
  Report Type: 
  Country: None (occurrence: None)
  Receive Date: 20051020
  Receipt Date: 20051010
  Transmission Date: 20060501
  Serious: Yes (Hospitalization)
  Sender: FDA-Public Use
  Company Number: EM2005-0480

PATIENT
  Age: 49 Year
  Sex: Female

DRUGS (11)
  1. PROLEUKIN [Suspect]
     Indication: RENAL CELL CARCINOMA STAGE UNSPECIFIED
     Dosage: SUBCUTAN.
     Route: 058
     Dates: start: 20050901, end: 20050907
  2. INTERFERON ALFA (INTERFERON ALFA) [Suspect]
     Indication: RENAL CELL CARCINOMA STAGE UNSPECIFIED
     Dosage: INTRAVENOUS
     Route: 042
     Dates: start: 20050901, end: 20050907
  3. FLUOROURACIL [Suspect]
     Indication: RENAL CELL CARCINOMA STAGE UNSPECIFIED
     Dosage: INTRAVENOUS
     Route: 042
     Dates: start: 20050901, end: 20050907
  4. NOZINAN (LEVOMEPROMAZINE) [Concomitant]
  5. OXYCONTIN [Concomitant]
  6. OXINORM (ORGOTEIN) [Concomitant]
  7. AMITRIPTYLINE HCL [Concomitant]
  8. PARACETAMOL (PARACETAMOL) [Concomitant]
  9. PIRITON (CHLORPHENAMINE MALEATE) [Concomitant]
  10. IBUPROFEN [Concomitant]
  11. LANSOPRAZOLE [Concomitant]

REACTIONS (7)
  - CONFUSIONAL STATE [None]
  - DEHYDRATION [None]
  - HYPERSOMNIA [None]
  - INFECTION [None]
  - NAUSEA [None]
  - PAIN [None]
  - SOMNOLENCE [None]
